FAERS Safety Report 8649837 (Version 2)
Quarter: 2012Q4

REPORT INFORMATION
  Report Type: 
  Country: US (occurrence: US)
  Receive Date: 20120705
  Receipt Date: 20121029
  Transmission Date: 20130627
  Serious: Yes (Hospitalization)
  Sender: FDA-Public Use
  Company Number: US-BAYER-2012-065394

PATIENT
  Age: 24 Year
  Sex: Female
  Weight: 136.5 kg

DRUGS (2)
  1. YAZ [Suspect]
     Dosage: UNK
     Dates: start: 2005, end: 2008
  2. PRILOSEC [Concomitant]

REACTIONS (7)
  - Gallbladder injury [None]
  - Cholelithiasis [None]
  - Pancreatitis [None]
  - Pain [None]
  - Fear [None]
  - Injury [None]
  - Pain [None]
